FAERS Safety Report 20234323 (Version 1)
Quarter: 2021Q4

REPORT INFORMATION
  Report Type: Spontaneous
  Country: US (occurrence: US)
  Receive Date: 20211227
  Receipt Date: 20211227
  Transmission Date: 20220303
  Serious: No
  Sender: FDA-Public Use
  Company Number: US-FOUNDATIONCONSUMERHC-2021-US-021138

PATIENT
  Age: 22 Year
  Sex: Female
  Weight: 74.39 kg

DRUGS (3)
  1. PLAN B ONE-STEP [Suspect]
     Active Substance: LEVONORGESTREL
     Indication: Post coital contraception
     Dosage: 1.5 MG
     Route: 048
     Dates: start: 20210907, end: 20210907
  2. CEPHALEXIN [Suspect]
     Active Substance: CEPHALEXIN
     Dosage: 500 MG BID FOR 5 DAYS
     Route: 048
     Dates: start: 20210919, end: 20210923
  3. TRI-SPRINTEC [Suspect]
     Active Substance: ETHINYL ESTRADIOL\NORGESTIMATE
     Dosage: HAD NOT TAKEN THE WEEK OF PLAN B USE

REACTIONS (3)
  - Hypomenorrhoea [Not Recovered/Not Resolved]
  - Vaginal haemorrhage [Not Recovered/Not Resolved]
  - Urinary tract infection [Unknown]

NARRATIVE: CASE EVENT DATE: 20210908
